FAERS Safety Report 15626712 (Version 2)
Quarter: 2019Q1

REPORT INFORMATION
  Report Type: Spontaneous
  Country: CH (occurrence: CH)
  Receive Date: 20181116
  Receipt Date: 20190130
  Transmission Date: 20190417
  Serious: Yes (Hospitalization)
  Sender: FDA-Public Use
  Company Number: CH-MYLANLABS-2018M1085602

PATIENT
  Sex: Male

DRUGS (7)
  1. IMIGRAN                            /01044801/ [Suspect]
     Active Substance: SUMATRIPTAN
     Indication: MIGRAINE
     Dosage: UNK
     Dates: start: 201711
  2. ISOPTIN [Concomitant]
     Active Substance: VERAPAMIL HYDROCHLORIDE
     Indication: CLUSTER HEADACHE
     Dosage: UNK
  3. ISOPTIN [Suspect]
     Active Substance: VERAPAMIL HYDROCHLORIDE
     Indication: MIGRAINE
     Dosage: UNK
  4. CORTISONE [Suspect]
     Active Substance: CORTISONE\HYDROCORTISONE
     Indication: CLUSTER HEADACHE
     Dosage: UNK, HIGH DOSE
     Dates: start: 2017, end: 201711
  5. ISOPTIN [Suspect]
     Active Substance: VERAPAMIL HYDROCHLORIDE
     Indication: CLUSTER HEADACHE
     Dosage: UNK UNK, BID
     Dates: start: 2017
  6. LITHIOFOR [Suspect]
     Active Substance: LITHIUM SULFATE
     Indication: MIGRAINE
     Dosage: UNK
     Dates: end: 2017
  7. LITHIOFOR [Suspect]
     Active Substance: LITHIUM SULFATE
     Indication: CLUSTER HEADACHE

REACTIONS (5)
  - Neurological decompensation [Unknown]
  - Palpitations [Not Recovered/Not Resolved]
  - Drug withdrawal syndrome [Recovered/Resolved]
  - Diarrhoea [Not Recovered/Not Resolved]
  - Product use in unapproved indication [Not Recovered/Not Resolved]

NARRATIVE: CASE EVENT DATE: 201711
